FAERS Safety Report 5485977-8 (Version None)
Quarter: 2007Q4

REPORT INFORMATION
  Report Type: 
  Country: None (occurrence: None)
  Receive Date: 20071012
  Receipt Date: 20070928
  Transmission Date: 20080405
  Serious: Yes (Hospitalization)
  Sender: FDA-Public Use
  Company Number: 07-001999

PATIENT
  Age: 51 Year
  Sex: Male

DRUGS (1)
  1. DURICEF [Suspect]
     Dosage: 500 MG, BID

REACTIONS (13)
  - ALANINE AMINOTRANSFERASE INCREASED [None]
  - ARTHRALGIA [None]
  - ASPARTATE AMINOTRANSFERASE INCREASED [None]
  - BLOOD ALKALINE PHOSPHATASE INCREASED [None]
  - DERMATITIS EXFOLIATIVE [None]
  - DRUG RASH WITH EOSINOPHILIA AND SYSTEMIC SYMPTOMS [None]
  - HEPATIC FUNCTION ABNORMAL [None]
  - LYMPHOCYTE MORPHOLOGY ABNORMAL [None]
  - MYALGIA [None]
  - POSTOPERATIVE WOUND INFECTION [None]
  - PROTEIN TOTAL DECREASED [None]
  - RENAL IMPAIRMENT [None]
  - WOUND INFECTION STAPHYLOCOCCAL [None]
